FAERS Safety Report 7443224-1 (Version None)
Quarter: 2011Q2

REPORT INFORMATION
  Report Type: 
  Country: None (occurrence: None)
  Receive Date: 20110428
  Receipt Date: 20110418
  Transmission Date: 20111010
  Serious: Yes (Hospitalization)
  Sender: FDA-Public Use
  Company Number: B0714440A

PATIENT
  Sex: Female

DRUGS (2)
  1. TYVERB [Suspect]
     Dosage: 1250MG PER DAY
     Route: 048
     Dates: start: 20100802, end: 20110401
  2. XELODA [Suspect]
     Dosage: 4000MG PER DAY
     Route: 048
     Dates: start: 20100802, end: 20110401

REACTIONS (6)
  - PNEUMATOSIS INTESTINALIS [None]
  - HYPOKALAEMIA [None]
  - PYREXIA [None]
  - INTESTINAL PERFORATION [None]
  - DIARRHOEA [None]
  - INFLAMMATION [None]
